FAERS Safety Report 19095154 (Version 2)
Quarter: 2021Q2

REPORT INFORMATION
  Report Type: Spontaneous
  Country: IT (occurrence: IT)
  Receive Date: 20210405
  Receipt Date: 20210419
  Transmission Date: 20210717
  Serious: Yes (Other)
  Sender: FDA-Public Use
  Company Number: IT-EXELTIS PHARMACEUTICAL HOLDING, S.L.-2103IT00362

PATIENT
  Age: 41 Year
  Sex: Female
  Weight: 85 kg

DRUGS (3)
  1. SLINDA [Suspect]
     Active Substance: DROSPIRENONE
     Indication: CONTRACEPTION
     Dosage: 4 MILLIGRAM, QD
     Route: 048
     Dates: start: 20201210, end: 20210228
  2. COVID?19 VACCINE NOS. [Concomitant]
     Active Substance: COVID-19 VACCINE NOS
     Indication: COVID-19 IMMUNISATION
     Dosage: 1 DOSAGE FORM
     Dates: start: 20210111
  3. COVID?19 VACCINE NOS. [Concomitant]
     Active Substance: COVID-19 VACCINE NOS
     Dosage: 1 DOSAGE FORM
     Dates: start: 20210201

REACTIONS (4)
  - Oedema peripheral [Recovered/Resolved]
  - Erythema [Recovered/Resolved]
  - Venous thrombosis [Recovered/Resolved]
  - Pain in extremity [Recovered/Resolved]

NARRATIVE: CASE EVENT DATE: 20210228
